FAERS Safety Report 5105124-1 (Version None)
Quarter: 2006Q3

REPORT INFORMATION
  Report Type: 
  Country: None (occurrence: None)
  Receive Date: 20060911
  Receipt Date: 20060906
  Transmission Date: 20061208
  Serious: Yes (Hospitalization)
  Sender: FDA-Public Use
  Company Number: 163-20785-06090132

PATIENT
  Age: 48 Year
  Sex: Female
  Weight: 82.1918 kg

DRUGS (2)
  1. THALOMID [Suspect]
     Indication: MULTIPLE MYELOMA
     Dosage: 200 MG, ONCE PER DAY, ORAL
     Route: 048
     Dates: start: 20060321
  2. DEXAMETHASONE TAB [Concomitant]

REACTIONS (3)
  - ASTHENIA [None]
  - HYPOTENSION [None]
  - URINARY TRACT INFECTION [None]
